FAERS Safety Report 8208294-1 (Version None)
Quarter: 2012Q1

REPORT INFORMATION
  Report Type: 
  Country: None (occurrence: None)
  Receive Date: 20120314
  Receipt Date: 20120313
  Transmission Date: 20120608
  Serious: Yes (Other)
  Sender: FDA-Public Use
  Company Number: PHHY2012BR015712

PATIENT
  Sex: Female

DRUGS (2)
  1. DIOVAN [Suspect]
     Dosage: 80 MG, BID
  2. DIOVAN [Suspect]
     Indication: HYPERTENSION
     Dosage: 80 MG, A DAY

REACTIONS (9)
  - HEADACHE [None]
  - INCORRECT DOSE ADMINISTERED [None]
  - BLOOD PRESSURE INCREASED [None]
  - CONFUSIONAL STATE [None]
  - FATIGUE [None]
  - HYPERSENSITIVITY [None]
  - COUGH [None]
  - ANXIETY [None]
  - EMOTIONAL DISORDER [None]
